FAERS Safety Report 6573620-6 (Version None)
Quarter: 2010Q1

REPORT INFORMATION
  Report Type: 
  Country: None (occurrence: None)
  Receive Date: 20100204
  Receipt Date: 20100204
  Transmission Date: 20100710
  Serious: No
  Sender: FDA-Public Use
  Company Number: None

PATIENT
  Age: 32 Year
  Sex: Female

DRUGS (1)
  1. FENTANYL [Suspect]
     Dosage: 1 PATCH 2 DAYS TRANSDERMAL
     Route: 062
     Dates: start: 20060129, end: 20100202

REACTIONS (2)
  - AMNESIA [None]
  - DEVICE FAILURE [None]
